FAERS Safety Report 6820905-1 (Version None)
Quarter: 2010Q3

REPORT INFORMATION
  Report Type: 
  Country: None (occurrence: None)
  Receive Date: 20100707
  Receipt Date: 20070627
  Transmission Date: 20110219
  Serious: No
  Sender: FDA-Public Use
  Company Number: US-PFIZER INC-2007043621

PATIENT
  Sex: Female

DRUGS (2)
  1. SERTRALINE [Suspect]
     Dosage: THREE TABLETS
  2. ZOLOFT [Concomitant]

REACTIONS (2)
  - ABDOMINAL DISTENSION [None]
  - OESOPHAGEAL DISCOMFORT [None]
